FAERS Safety Report 22247964 (Version 1)
Quarter: 2023Q2

REPORT INFORMATION
  Report Type: Spontaneous
  Country: US (occurrence: None)
  Receive Date: 20230425
  Receipt Date: 20230425
  Transmission Date: 20230721
  Serious: No
  Sender: FDA-Public Use
  Company Number: US-SUPERNUS Pharmaceuticals, Inc.-SUP202303-001262

PATIENT
  Age: 9 Year
  Sex: Male
  Weight: 29.48 kg

DRUGS (4)
  1. QELBREE [Suspect]
     Active Substance: VILOXAZINE HYDROCHLORIDE
     Indication: Attention deficit hyperactivity disorder
     Route: 048
     Dates: start: 20230311
  2. SERTRALINE [Concomitant]
     Active Substance: SERTRALINE HYDROCHLORIDE
     Indication: Anxiety
     Dosage: NOT PROVIDED
  3. GUANIDINE [Concomitant]
     Active Substance: GUANIDINE
     Indication: Attention deficit hyperactivity disorder
     Dosage: NOT PROVIDED
  4. GABAPENTIN [Concomitant]
     Active Substance: GABAPENTIN
     Indication: Attention deficit hyperactivity disorder
     Dosage: NOT PROVIDED

REACTIONS (1)
  - Polyuria [Not Recovered/Not Resolved]

NARRATIVE: CASE EVENT DATE: 20230301
